FAERS Safety Report 9997373 (Version 1)
Quarter: 2014Q1

REPORT INFORMATION
  Report Type: Spontaneous
  Country: US (occurrence: None)
  Receive Date: 20140218
  Receipt Date: 20140218
  Transmission Date: 20141002
  Serious: Yes (Other)
  Sender: FDA-Public Use
  Company Number: 1000051926

PATIENT
  Age: 36 Year
  Sex: Female

DRUGS (4)
  1. VIIBRYD [Suspect]
     Indication: DEPRESSION
     Dosage: 1 IN 1 D
     Route: 048
     Dates: start: 201310, end: 2013
  2. VIIBRYD (VILAZODONE HYDROCHLORIDE) (20 MILLIGRAM, TABLETS) [Suspect]
     Indication: DEPRESSION
     Dosage: 1 IN 1 D
     Route: 048
     Dates: start: 201311, end: 20131125
  3. BIRTH CONTROL (NOS) (BIRTH CONTROL (NOS)) (BIRTH CONTROL (NOS)) [Concomitant]
  4. AZITHROMYCIN [Concomitant]

REACTIONS (4)
  - Abnormal dreams [None]
  - Somnolence [None]
  - Abnormal sleep-related event [None]
  - Hallucination, auditory [None]
